FAERS Safety Report 6573831-X (Version None)
Quarter: 2010Q1

REPORT INFORMATION
  Report Type: 
  Country: None (occurrence: None)
  Receive Date: 20100208
  Receipt Date: 20100202
  Transmission Date: 20100710
  Serious: Yes (Hospitalization)
  Sender: FDA-Public Use
  Company Number: FR-BRISTOL-MYERS SQUIBB COMPANY-14961312

PATIENT
  Age: 67 Year
  Sex: Male

DRUGS (18)
  1. APROVEL FILM-COATED TABS 150 MG [Suspect]
     Indication: HYPERTENSION
     Dates: start: 20091124, end: 20091129
  2. KETOPROFEN [Suspect]
     Indication: MUSCULOSKELETAL PAIN
     Dates: start: 20091120, end: 20091126
  3. NEXIUM [Suspect]
     Indication: MUSCULOSKELETAL PAIN
     Dates: start: 20091120, end: 20091126
  4. LASILIX [Suspect]
     Indication: HYPERTENSION
     Dosage: ON 21-NOV-09 DOSE INCREASED TO 200MG/DAY
     Dates: end: 20091129
  5. HYZAAR [Suspect]
     Indication: HYPERTENSION
     Dates: end: 20091124
  6. AMLOR [Concomitant]
  7. KARDEGIC [Concomitant]
  8. ATENOLOL [Concomitant]
  9. CRESTOR [Concomitant]
  10. AVANDIA [Concomitant]
  11. ALLOPURINOL [Concomitant]
  12. PERMIXON [Concomitant]
  13. LEXOMIL [Concomitant]
  14. TOPALGIC LP [Concomitant]
  15. DIFFU-K [Concomitant]
  16. LEVEMIR [Concomitant]
  17. EDUCTYL [Concomitant]
  18. FORLAX [Concomitant]

REACTIONS (2)
  - HYPOVOLAEMIA [None]
  - RENAL FAILURE ACUTE [None]
